FAERS Safety Report 19964385 (Version 1)
Quarter: 2021Q4

REPORT INFORMATION
  Report Type: Spontaneous
  Country: US (occurrence: US)
  Receive Date: 20211018
  Receipt Date: 20211018
  Transmission Date: 20220303
  Serious: No
  Sender: FDA-Public Use
  Company Number: None

PATIENT
  Age: 29 Year
  Sex: Female

DRUGS (1)
  1. MESALAMINE [Suspect]
     Active Substance: MESALAMINE
     Indication: Inflammatory bowel disease
     Dosage: ?          QUANTITY:2 TABLET(S);
     Route: 048
     Dates: start: 20210917, end: 20211016

REACTIONS (4)
  - Exposure via breast milk [None]
  - Rash [None]
  - Eczema [None]
  - Dermatitis atopic [None]

NARRATIVE: CASE EVENT DATE: 20211016
